FAERS Safety Report 6110729-5 (Version None)
Quarter: 2009Q1

REPORT INFORMATION
  Report Type: 
  Country: None (occurrence: None)
  Receive Date: 20090304
  Receipt Date: 20090219
  Transmission Date: 20090719
  Serious: Yes (Other)
  Sender: FDA-Public Use
  Company Number: THYM-1000920

PATIENT
  Age: 12 Year
  Sex: Female
  Weight: 50 kg

DRUGS (7)
  1. THYMOGLOBULIN [Suspect]
     Indication: APLASTIC ANAEMIA
     Dosage: 2.5 MG, QD, INTRAVENOUS; 97.5 MG, QD, INTRAVENOUS
     Route: 042
     Dates: start: 20090218, end: 20090218
  2. THYMOGLOBULIN [Suspect]
     Indication: APLASTIC ANAEMIA
     Dosage: 2.5 MG, QD, INTRAVENOUS; 97.5 MG, QD, INTRAVENOUS
     Route: 042
     Dates: start: 20090218, end: 20090219
  3. THYMOGLOBULIN [Suspect]
  4. METHYLPREDNISOLONE [Concomitant]
  5. CYCLOSPORINE [Concomitant]
  6. CHLORPHENIRAMINE MALEATE [Concomitant]
  7. AMPHOTERICIN B [Concomitant]

REACTIONS (13)
  - ABDOMINAL PAIN UPPER [None]
  - CHEST PAIN [None]
  - DISSEMINATED INTRAVASCULAR COAGULATION [None]
  - DYSPNOEA [None]
  - HAEMOGLOBIN DECREASED [None]
  - ILEUS [None]
  - LYMPHADENOPATHY [None]
  - PLATELET COUNT DECREASED [None]
  - PRURITUS [None]
  - PYREXIA [None]
  - STEVENS-JOHNSON SYNDROME [None]
  - TACHYCARDIA [None]
  - WHITE BLOOD CELL COUNT DECREASED [None]
